FAERS Safety Report 10445666 (Version 3)
Quarter: 2015Q4

REPORT INFORMATION
  Report Type: Spontaneous
  Country: US (occurrence: US)
  Receive Date: 20140908
  Receipt Date: 20151005
  Transmission Date: 20160304
  Serious: Yes (Hospitalization, Other)
  Sender: FDA-Public Use
  Company Number: US-PFIZER INC-2014248920

PATIENT
  Age: 55 Year
  Sex: Female
  Weight: 95 kg

DRUGS (5)
  1. LYRICA [Suspect]
     Active Substance: PREGABALIN
     Indication: DIABETIC NEUROPATHY
     Dosage: 150 MG, 2X/DAY
     Route: 048
  2. LIPITOR [Concomitant]
     Active Substance: ATORVASTATIN CALCIUM
     Indication: BLOOD CHOLESTEROL INCREASED
     Dosage: 80 MG A DAY
  3. LYRICA [Suspect]
     Active Substance: PREGABALIN
     Indication: PLANTAR FASCIITIS
  4. CELEXA [Concomitant]
     Active Substance: CITALOPRAM HYDROBROMIDE
     Dosage: UNK
  5. MORPHINE [Concomitant]
     Active Substance: MORPHINE
     Dosage: AT NIGHT

REACTIONS (20)
  - Speech disorder [Unknown]
  - Product use issue [Unknown]
  - Cerebrovascular accident [Recovered/Resolved with Sequelae]
  - Dysphagia [Unknown]
  - Dissociation [Unknown]
  - Sensory loss [Unknown]
  - Feeling of body temperature change [Unknown]
  - Memory impairment [Unknown]
  - Mental impairment [Unknown]
  - Back disorder [Unknown]
  - Hypertension [Unknown]
  - Dizziness [Unknown]
  - Somnolence [Not Recovered/Not Resolved]
  - VIIth nerve paralysis [Unknown]
  - Confusional state [Unknown]
  - Peripheral swelling [Unknown]
  - Sleep disorder [Recovering/Resolving]
  - Hallucination [Unknown]
  - Feeling abnormal [Unknown]
  - Muscle twitching [Unknown]

NARRATIVE: CASE EVENT DATE: 20150305
